FAERS Safety Report 23144290 (Version 1)
Quarter: 2023Q4

REPORT INFORMATION
  Report Type: Report from Study
  Country: FR (occurrence: FR)
  Receive Date: 20231103
  Receipt Date: 20231103
  Transmission Date: 20240110
  Serious: Yes (Death, Other)
  Sender: FDA-Public Use
  Company Number: FR-JNJFOC-20231072557

PATIENT
  Age: 91 Year
  Sex: Male

DRUGS (3)
  1. BORTEZOMIB [Suspect]
     Active Substance: BORTEZOMIB
     Indication: Plasma cell myeloma
     Dosage: BORTEZOMIB 2 MG/DOSE, TREATMENT LINE 2
     Route: 065
     Dates: end: 20220328
  2. DEXAMETHASONE [Suspect]
     Active Substance: DEXAMETHASONE
     Indication: Plasma cell myeloma
     Dosage: DEXAMETHASONE 40 MG/DOSE
     Route: 065
     Dates: end: 20220328
  3. DARZALEX [Suspect]
     Active Substance: DARATUMUMAB
     Indication: Plasma cell myeloma
     Dosage: DARATUMUMAB 900 MG/DOSE,  TREATMENT LINE 2
     Route: 065
     Dates: end: 20220328

REACTIONS (2)
  - General physical health deterioration [Fatal]
  - Plasma cell myeloma [Unknown]
